FAERS Safety Report 11585592 (Version 1)
Quarter: 2015Q4

REPORT INFORMATION
  Report Type: Spontaneous
  Country: US (occurrence: US)
  Receive Date: 20151001
  Receipt Date: 20151001
  Transmission Date: 20160304
  Serious: No
  Sender: FDA-Public Use
  Company Number: US-ASTRAZENECA-2015SE91749

PATIENT
  Sex: Female
  Weight: 59 kg

DRUGS (4)
  1. MELATONIN [Concomitant]
     Active Substance: MELATONIN
  2. SYMBICORT [Suspect]
     Active Substance: BUDESONIDE\FORMOTEROL FUMARATE DIHYDRATE
     Indication: EMPHYSEMA
     Dosage: 160/4.5; 160 UG, TWO TIMES A DAY
     Route: 055
     Dates: start: 20150828
  3. BENAZEPRIL HYDROCHLORIDE. [Concomitant]
     Active Substance: BENAZEPRIL HYDROCHLORIDE
     Indication: HYPERTENSION
     Route: 048
     Dates: start: 2015
  4. ADVAIR HFA [Concomitant]
     Active Substance: FLUTICASONE PROPIONATE\SALMETEROL XINAFOATE

REACTIONS (5)
  - Drug dose omission [Unknown]
  - Drug ineffective [Unknown]
  - Memory impairment [Unknown]
  - Insomnia [Unknown]
  - Product quality issue [Unknown]
